FAERS Safety Report 5364183-1 (Version None)
Quarter: 2007Q2

REPORT INFORMATION
  Report Type: 
  Country: None (occurrence: None)
  Receive Date: 20070620
  Receipt Date: 20070608
  Transmission Date: 20071010
  Serious: Yes (Other)
  Sender: FDA-Public Use
  Company Number: US-PFIZER INC-2007047966

PATIENT

DRUGS (1)
  1. LIPITOR [Suspect]

REACTIONS (2)
  - MUSCULAR WEAKNESS [None]
  - PAIN [None]
